FAERS Safety Report 7244446-5 (Version None)
Quarter: 2011Q1

REPORT INFORMATION
  Report Type: 
  Country: None (occurrence: None)
  Receive Date: 20110125
  Receipt Date: 20110124
  Transmission Date: 20110831
  Serious: No
  Sender: FDA-Public Use
  Company Number: PR-ABBOTT-11P-131-0697444-00

PATIENT
  Sex: Female
  Weight: 77.18 kg

DRUGS (4)
  1. ANTIINFLAMMATORY AGENTS [Concomitant]
     Indication: PAIN
     Route: 048
  2. METHOTREXATE [Concomitant]
     Indication: RHEUMATOID ARTHRITIS
     Route: 048
  3. MUSCLE RELAXANTS [Concomitant]
     Indication: PAIN
     Route: 048
  4. HUMIRA [Suspect]
     Indication: RHEUMATOID ARTHRITIS
     Route: 058
     Dates: start: 20100901, end: 20101201

REACTIONS (8)
  - WEIGHT INCREASED [None]
  - HEADACHE [None]
  - HAEMOGLOBIN DECREASED [None]
  - MENORRHAGIA [None]
  - VAGINAL HAEMORRHAGE [None]
  - PHARYNGEAL HAEMORRHAGE [None]
  - EAR HAEMORRHAGE [None]
  - MENSTRUATION IRREGULAR [None]
